FAERS Safety Report 10084186 (Version 2)
Quarter: 2014Q2

REPORT INFORMATION
  Report Type: Spontaneous
  Country: US (occurrence: None)
  Receive Date: 20140415
  Receipt Date: 20140603
  Transmission Date: 20141212
  Serious: Yes (Other)
  Sender: FDA-Public Use
  Company Number: 2014US003164

PATIENT
  Age: 79 Year
  Sex: Male
  Weight: 107.8 kg

DRUGS (10)
  1. PONATINIB [Suspect]
     Indication: CHRONIC MYELOID LEUKAEMIA
     Route: 048
     Dates: start: 20081112
  2. BYSTOLIC(NEBIVOLOL HYDROCHLORIDE) [Concomitant]
  3. COUMADIN(WARFARIN SODIUM) [Concomitant]
  4. CRESTOR(ROSUVASTATIN CALCIUM) [Concomitant]
  5. EFUDEX(FLUOROURACIL) [Concomitant]
  6. FLOMAX(MORNIFLUMATE) [Concomitant]
  7. PREDNISONE(PREDNISONE ACETATE) [Concomitant]
  8. PROTONIX(PANTOPRAZOLE SODIUM SESQUIHYDRATE) [Concomitant]
  9. TORSEMIDE(TORSEMIDE) [Concomitant]
  10. AMLODIPINE BESYLATE(AMLODIPINE BESYLATE) [Concomitant]

REACTIONS (3)
  - Atrial thrombosis [None]
  - Pulmonary mass [None]
  - Pleural effusion [None]
